FAERS Safety Report 16747763 (Version 1)
Quarter: 2019Q3

REPORT INFORMATION
  Report Type: Spontaneous
  Country: CN (occurrence: CN)
  Receive Date: 20190827
  Receipt Date: 20190827
  Transmission Date: 20191005
  Serious: Yes (Life-Threatening, Hospitalization)
  Sender: FDA-Public Use
  Company Number: PHHY2019CN197199

PATIENT
  Age: 17 Year
  Sex: Female

DRUGS (5)
  1. VERAPAMIL [Suspect]
     Active Substance: VERAPAMIL HYDROCHLORIDE
     Indication: TACHYARRHYTHMIA
     Dosage: UNK
     Route: 065
  2. ACETYLSALICYLIC ACID [Concomitant]
     Active Substance: ASPIRIN
     Indication: PRODUCT USED FOR UNKNOWN INDICATION
     Dosage: UNK
     Route: 048
  3. ADENOSINE. [Suspect]
     Active Substance: ADENOSINE
     Indication: TACHYARRHYTHMIA
     Dosage: UNK
     Route: 065
  4. AMIODARONE [Suspect]
     Active Substance: AMIODARONE
     Indication: TACHYARRHYTHMIA
     Dosage: UNK
     Route: 065
  5. METOPROLOL. [Suspect]
     Active Substance: METOPROLOL
     Indication: TACHYARRHYTHMIA
     Dosage: UNK
     Route: 065

REACTIONS (5)
  - Cardiogenic shock [Recovered/Resolved]
  - Hypoxia [Recovered/Resolved]
  - Drug ineffective [Unknown]
  - Pulmonary congestion [Recovered/Resolved]
  - Pulmonary oedema [Recovered/Resolved]
